FAERS Safety Report 8003678-9 (Version None)
Quarter: 2011Q4

REPORT INFORMATION
  Report Type: 
  Country: None (occurrence: None)
  Receive Date: 20111222
  Receipt Date: 20111215
  Transmission Date: 20120403
  Serious: Yes (Life-Threatening, Hospitalization, Other)
  Sender: FDA-Public Use
  Company Number: US-ACTELION-A-NJ2011-54881

PATIENT

DRUGS (3)
  1. METOPROLOL TARTRATE [Suspect]
  2. COUMADIN [Concomitant]
  3. TRACLEER [Suspect]
     Indication: PULMONARY ARTERIAL HYPERTENSION
     Dosage: 62.5 MG, BID
     Route: 048
     Dates: start: 20060811

REACTIONS (4)
  - SYNCOPE [None]
  - SICK SINUS SYNDROME [None]
  - CARDIAC PACEMAKER INSERTION [None]
  - BRADYCARDIA [None]
